FAERS Safety Report 10050477 (Version 1)
Quarter: 2014Q2

REPORT INFORMATION
  Report Type: Spontaneous
  Country: US (occurrence: US)
  Receive Date: 20140401
  Receipt Date: 20140401
  Transmission Date: 20141212
  Serious: No
  Sender: FDA-Public Use
  Company Number: US-ASTRAZENECA-2013SE78244

PATIENT
  Age: 74 Year
  Sex: Male
  Weight: 68 kg

DRUGS (3)
  1. NEXIUM [Suspect]
     Indication: OESOPHAGEAL PAIN
     Route: 048
     Dates: start: 2008, end: 20131019
  2. OVER THE COUNTER MEDICATION [Suspect]
     Route: 065
  3. IMMODIUM [Concomitant]
     Indication: DIARRHOEA

REACTIONS (4)
  - Pain [Unknown]
  - Diarrhoea [Unknown]
  - Drug dose omission [Unknown]
  - Off label use [Unknown]
